FAERS Safety Report 7867251-5 (Version None)
Quarter: 2011Q4

REPORT INFORMATION
  Report Type: 
  Country: None (occurrence: None)
  Receive Date: 20111028
  Receipt Date: 20111026
  Transmission Date: 20120403
  Serious: Yes (Other)
  Sender: FDA-Public Use
  Company Number: AU-JNJFOC-20111012241

PATIENT
  Sex: Female

DRUGS (5)
  1. SIMPONI [Suspect]
     Route: 058
     Dates: start: 20111016
  2. ACTONEL [Concomitant]
  3. SIMPONI [Suspect]
     Indication: RHEUMATOID ARTHRITIS
     Route: 058
     Dates: start: 20110716
  4. PREDNISONE [Concomitant]
  5. METHOTREXATE [Concomitant]

REACTIONS (7)
  - FATIGUE [None]
  - MALAISE [None]
  - ABDOMINAL DISTENSION [None]
  - BLOOD URINE PRESENT [None]
  - DYSURIA [None]
  - DRY MOUTH [None]
  - ABDOMINAL TENDERNESS [None]
